FAERS Safety Report 7081455-3 (Version None)
Quarter: 2010Q4

REPORT INFORMATION
  Report Type: 
  Country: None (occurrence: None)
  Receive Date: 20101103
  Receipt Date: 20101026
  Transmission Date: 20110411
  Serious: No
  Sender: FDA-Public Use
  Company Number: US-B.I. PHARMACEUTICALS,INC./RIDGEFIELD-2010-BP-12025BP

PATIENT
  Sex: Male

DRUGS (6)
  1. COMBIVENT [Suspect]
     Indication: CHRONIC OBSTRUCTIVE PULMONARY DISEASE
     Dates: start: 20101001
  2. ALBUTEROL [Concomitant]
     Dates: start: 20000101
  3. GLIPIZIDE [Concomitant]
  4. SIMVASTATIN [Concomitant]
  5. ADVAIR DISKUS 100/50 [Concomitant]
  6. PLAVIX [Concomitant]

REACTIONS (1)
  - DRUG INEFFECTIVE [None]
